FAERS Safety Report 25337165 (Version 1)
Quarter: 2025Q2

REPORT INFORMATION
  Report Type: Spontaneous
  Country: FR (occurrence: FR)
  Receive Date: 20250520
  Receipt Date: 20250520
  Transmission Date: 20250716
  Serious: Yes (Other)
  Sender: ORGANON
  Company Number: None

PATIENT
  Age: 1 Year
  Sex: Male
  Weight: 10 kg

DRUGS (1)
  1. BETAMETHASONE [Suspect]
     Active Substance: BETAMETHASONE
     Indication: Ear infection
     Route: 001
     Dates: start: 20241029, end: 20241029

REACTIONS (7)
  - Malaise [Recovered/Resolved]
  - Salivary hypersecretion [Recovered/Resolved]
  - Eye movement disorder [Recovered/Resolved]
  - Wrong product administered [Recovered/Resolved]
  - Accidental overdose [Recovered/Resolved]
  - Product appearance confusion [Recovered/Resolved]
  - Incorrect route of product administration [Unknown]

NARRATIVE: CASE EVENT DATE: 20241029
